FAERS Safety Report 5690785-9 (Version None)
Quarter: 2008Q2

REPORT INFORMATION
  Report Type: 
  Country: None (occurrence: None)
  Receive Date: 20080401
  Receipt Date: 20080327
  Transmission Date: 20081010
  Serious: Yes (Other)
  Sender: FDA-Public Use
  Company Number: A0717859A

PATIENT
  Sex: Female

DRUGS (6)
  1. LAMICTAL [Suspect]
     Indication: PARTIAL SEIZURES
     Dosage: 100MG TWICE PER DAY
     Route: 048
     Dates: start: 20070101
  2. BIRTH CONTROL PILL [Concomitant]
  3. ZYRTEC [Concomitant]
  4. EFFEXOR [Concomitant]
     Dosage: 75MG UNKNOWN
  5. TRAZODONE HCL [Concomitant]
     Dosage: 50MG UNKNOWN
  6. KEPPRA [Concomitant]
     Dosage: 2250U PER DAY

REACTIONS (3)
  - APHASIA [None]
  - CONDITION AGGRAVATED [None]
  - EMOTIONAL DISTRESS [None]
